FAERS Safety Report 9150711 (Version 1)
Quarter: 2013Q1

REPORT INFORMATION
  Report Type: Spontaneous
  Country: US (occurrence: US)
  Receive Date: 20130308
  Receipt Date: 20130308
  Transmission Date: 20140127
  Serious: No
  Sender: FDA-Public Use
  Company Number: US-GLAXOSMITHKLINE-A0961528A

PATIENT
  Age: 48 Year
  Sex: Female

DRUGS (6)
  1. NICORETTE [Suspect]
     Indication: EX-TOBACCO USER
  2. NICOTINE PATCH UNKNOWN BRAND [Suspect]
     Indication: EX-TOBACCO USER
  3. IRON [Concomitant]
  4. HORMONE REPLACEMENT THERAPY [Concomitant]
  5. UNSPECIFIED INGREDIENT [Concomitant]
  6. CALCIUM + VITAMIN D [Concomitant]

REACTIONS (2)
  - Nicotine dependence [Recovered/Resolved]
  - Drug ineffective [Unknown]
